FAERS Safety Report 12588176 (Version 2)
Quarter: 2016Q4

REPORT INFORMATION
  Report Type: Spontaneous
  Country: US (occurrence: US)
  Receive Date: 20160725
  Receipt Date: 20161130
  Transmission Date: 20170207
  Serious: Yes (Other)
  Sender: FDA-Public Use
  Company Number: US-BAYER-2016-138344

PATIENT
  Age: 44 Year
  Sex: Female
  Weight: 76.19 kg

DRUGS (4)
  1. NAPROXEN SODIUM. [Concomitant]
     Active Substance: NAPROXEN SODIUM
     Dosage: 550 MG, UNK
  2. TOBRAMYCIN. [Concomitant]
     Active Substance: TOBRAMYCIN
     Dosage: 0.3 %, UNK
  3. MIRENA [Suspect]
     Active Substance: LEVONORGESTREL
     Indication: CONTRACEPTION
     Dosage: 20 MCG/24HR, CONT
     Route: 015
     Dates: start: 20160517, end: 20160615
  4. ONDANSETRON [Concomitant]
     Active Substance: ONDANSETRON
     Dosage: 4 MG, UNK

REACTIONS (11)
  - Constipation [None]
  - Hypomenorrhoea [None]
  - Benign breast neoplasm [None]
  - Endometriosis [None]
  - Device dislocation [None]
  - Uterine leiomyoma [None]
  - Adverse event [None]
  - Vasodilatation [None]
  - Arthritis [None]
  - Anxiety [None]
  - Headache [None]

NARRATIVE: CASE EVENT DATE: 2016
